FAERS Safety Report 5728113-2 (Version None)
Quarter: 2008Q2

REPORT INFORMATION
  Report Type: 
  Country: None (occurrence: None)
  Receive Date: 20080505
  Receipt Date: 20080429
  Transmission Date: 20081010
  Serious: Yes (Other)
  Sender: FDA-Public Use
  Company Number: MW-GILEAD-2008-0016283

PATIENT
  Sex: Female
  Weight: 52 kg

DRUGS (5)
  1. EMTRICITABINE [Suspect]
     Indication: HIV INFECTION
     Route: 048
     Dates: start: 20060823
  2. DIDANOSINE [Suspect]
     Indication: HIV INFECTION
     Route: 048
     Dates: start: 20070823
  3. ATAZANAVIR SULFATE [Suspect]
     Indication: HIV INFECTION
     Route: 048
     Dates: start: 20060823
  4. DEPO-PROVERA [Concomitant]
     Indication: CONTRACEPTION
     Route: 030
     Dates: start: 20070914
  5. DEPO-PROVERA [Concomitant]
     Route: 030
     Dates: start: 20080201

REACTIONS (1)
  - ABORTION SPONTANEOUS [None]
